FAERS Safety Report 4283745-6 (Version None)
Quarter: 2004Q1

REPORT INFORMATION
  Report Type: 
  Country: None (occurrence: None)
  Receive Date: 20040129
  Receipt Date: 20040129
  Transmission Date: 20041129
  Serious: Yes (Death, Hospitalization)
  Sender: FDA-Public Use
  Company Number: None

PATIENT
  Age: 56 Year
  Sex: Male
  Weight: 55.7 kg

DRUGS (15)
  1. PROPOXYPHE HYDROCHLORIDE ASPIRIN PHENACETIN AND CAFFEINE CAP [Suspect]
     Indication: PAIN
     Dosage: PRESCRIBED AS 1-2 TABS Q6 H PRN PAIN, HOWEVER PATIENT APPARENTLY TOOK AN INTENTIONAL OVERDOSE.
  2. COZAAR [Concomitant]
  3. NEPHROVITE [Concomitant]
  4. ZELNORM [Concomitant]
  5. REGLAN [Concomitant]
  6. LACTULOSE [Concomitant]
  7. DURAGESIC [Concomitant]
  8. FOLIC ACID [Concomitant]
  9. CARAFATE [Concomitant]
  10. ZINC SULFATE [Concomitant]
  11. FERROUS SULFATE TAB [Concomitant]
  12. MAG-OX [Concomitant]
  13. DILANTIN [Concomitant]
  14. PROTONIC [Concomitant]
  15. CLONIDINE [Concomitant]

REACTIONS (3)
  - COMA [None]
  - DRUG LEVEL ABOVE THERAPEUTIC [None]
  - PUPIL FIXED [None]
